FAERS Safety Report 4512929-4 (Version None)
Quarter: 2004Q4

REPORT INFORMATION
  Report Type: 
  Country: None (occurrence: None)
  Receive Date: 20041119
  Receipt Date: 20041119
  Transmission Date: 20050328
  Serious: No
  Sender: FDA-Public Use
  Company Number: None

PATIENT
  Sex: Male
  Weight: 102 kg

DRUGS (2)
  1. INVANZ [Suspect]
     Indication: ARTHRITIS BACTERIAL
     Dosage: 1 GM EVERY 24 HOURS INTRAVENOU
     Route: 042
     Dates: start: 20041113, end: 20041113
  2. INVANZ [Suspect]
     Indication: STREPTOCOCCAL INFECTION
     Dosage: 1 GM EVERY 24 HOURS INTRAVENOU
     Route: 042
     Dates: start: 20041113, end: 20041113

REACTIONS (1)
  - RASH GENERALISED [None]
